FAERS Safety Report 9199010 (Version 2)
Quarter: 2013Q2

REPORT INFORMATION
  Report Type: Spontaneous
  Country: US (occurrence: None)
  Receive Date: 20130325
  Receipt Date: 20130415
  Transmission Date: 20140414
  Serious: No
  Sender: FDA-Public Use
  Company Number: 2013US-004592

PATIENT
  Age: 56 Year
  Sex: Female

DRUGS (30)
  1. OMONTYS (PEGINESATIDE) SOLUTION FOR INJECTION [Suspect]
     Indication: NEPHROGENIC ANAEMIA
     Route: 042
     Dates: start: 20130208, end: 20130208
  2. COZAAR (LOSARTAN POTASSIUM) [Concomitant]
  3. ERGOCALCIFEROL [Concomitant]
  4. FLONASE (FLUTICASONE PROPIONATE) [Concomitant]
  5. DEXTROSE 50% (GLUCOSE) [Concomitant]
  6. ADALAT (NIFEDIPINE) [Concomitant]
  7. BENADRYL (DIPHENHYDRAMINE HYDROCHLORIDE) [Concomitant]
  8. CARAFATE (SUCRALFATE) TABLET, 1G [Concomitant]
  9. CATAPRES-TTS (CLONIDINE) [Concomitant]
  10. CELEXA (CITALOPRAM HYDROBROMIDE) [Concomitant]
  11. EMLA (LIDOCAINE, PRILOCAINE) [Concomitant]
  12. GLUCAGON (GLUCAGON) [Concomitant]
  13. INSULIN R (INSULIN HUMAN) [Concomitant]
  14. LACTOBACILLUS ACIDOPHILUS (LACTOBACILLUS ACIDOPHILUS) [Concomitant]
  15. LANTUS (INSULIN GLARGINE) [Concomitant]
  16. LOMOTIL (ATROPINE SULFATE, DIPHENOXYLATE HYDROCHLORIDE) [Concomitant]
  17. LOPRESSOR (METOPROLOL TARTRATE) [Concomitant]
  18. NITROGLYCERIN (GLYCERYL TRINITRATE) [Concomitant]
  19. NOVOLIN R (INSULIN HUMAN) [Concomitant]
  20. OMEPRAZOLE (OMEPRAZOLE) [Concomitant]
  21. ONDANSETRON (ONDANSETRON) [Concomitant]
  22. PHENERGAN (PROMETHAZINE) [Concomitant]
  23. PRAVASTATIN (PRAVASTATIN) [Concomitant]
  24. PROMOD [Concomitant]
  25. RENAL SOFTGEL [Concomitant]
  26. RENVELA (SEVELAMER CARBONATE) [Concomitant]
  27. SEROQUEL (QUETIAPINE FUMARATE) [Concomitant]
  28. TYLENOL (PARACETAMOL) [Concomitant]
  29. VICODIN (HYDROCODONE BITARTRATE, PARACETAMOL) [Concomitant]
  30. CALCITRIOL (CALCITRIOL) (CALCITRIOL) [Concomitant]

REACTIONS (3)
  - Rash pruritic [None]
  - Rash [None]
  - Hypersensitivity [None]
